FAERS Safety Report 8531826-0 (Version None)
Quarter: 2012Q3

REPORT INFORMATION
  Report Type: 
  Country: None (occurrence: None)
  Receive Date: 20120723
  Receipt Date: 20120718
  Transmission Date: 20120928
  Serious: No
  Sender: FDA-Public Use
  Company Number: US-PFIZER INC-2012173808

PATIENT
  Sex: Female
  Weight: 107 kg

DRUGS (4)
  1. ADVIL [Suspect]
     Indication: DYSMENORRHOEA
  2. ADVIL [Suspect]
     Indication: PAIN
     Dosage: UNK
  3. ADVIL PM [Suspect]
     Indication: PAIN
     Dosage: UNK
  4. ADVIL PM [Suspect]
     Indication: DYSMENORRHOEA

REACTIONS (1)
  - FALSE POSITIVE INVESTIGATION RESULT [None]
